FAERS Safety Report 8266717-6 (Version None)
Quarter: 2012Q2

REPORT INFORMATION
  Report Type: 
  Country: None (occurrence: None)
  Receive Date: 20120409
  Receipt Date: 20120328
  Transmission Date: 20120825
  Serious: Yes (Other)
  Sender: FDA-Public Use
  Company Number: AR-BIOGENIDEC-2011BI042873

PATIENT
  Age: 50 Year
  Sex: Female

DRUGS (4)
  1. BACLOFEN [Concomitant]
     Indication: MUSCLE SPASMS
     Route: 048
  2. 4-AMINOPIRIDINE [Concomitant]
     Indication: MULTIPLE SCLEROSIS
     Route: 048
     Dates: start: 20110315
  3. TYSABRI [Suspect]
     Indication: MULTIPLE SCLEROSIS
     Route: 042
     Dates: start: 20100511
  4. SERTRALINE HYDROCHLORIDE [Concomitant]
     Indication: DEPRESSION
     Route: 048

REACTIONS (3)
  - PARESIS [None]
  - VIRAL TONSILLITIS [None]
  - URINARY TRACT INFECTION [None]
